FAERS Safety Report 25851367 (Version 1)
Quarter: 2025Q3

REPORT INFORMATION
  Report Type: Spontaneous
  Country: US (occurrence: None)
  Receive Date: 20250925
  Receipt Date: 20250925
  Transmission Date: 20251021
  Serious: Yes (Life-Threatening, Hospitalization)
  Sender: FDA-CTU
  Company Number: None

PATIENT
  Age: 65 Year
  Sex: Female
  Weight: 61.2 kg

DRUGS (17)
  1. LENVIMA [Suspect]
     Active Substance: LENVATINIB
     Indication: Thyroid cancer
     Dates: start: 20240424, end: 20250501
  2. LOSARTAN [Concomitant]
     Active Substance: LOSARTAN
  3. HYDROCHLOROTHIAZIDE [Concomitant]
     Active Substance: HYDROCHLOROTHIAZIDE
  4. PROCHLORPERAZINE [Concomitant]
     Active Substance: PROCHLORPERAZINE
  5. AMLODIPINE [Concomitant]
     Active Substance: AMLODIPINE BESYLATE
  6. CEPHALEXIN [Concomitant]
     Active Substance: CEPHALEXIN
  7. IBUPROFEN [Concomitant]
     Active Substance: IBUPROFEN
  8. VITAMIN A [Concomitant]
     Active Substance: VITAMIN A
  9. ACETAMINOPHEN\HYDROCODONE [Concomitant]
     Active Substance: ACETAMINOPHEN\HYDROCODONE
  10. METOPROLOL [Concomitant]
     Active Substance: METOPROLOL
  11. TRAMADOL [Concomitant]
     Active Substance: TRAMADOL
  12. VITAMIN D2 [Concomitant]
     Active Substance: ERGOCALCIFEROL
  13. FERROUS SULFATE [Concomitant]
     Active Substance: FERROUS SULFATE
  14. NICOTINAMIDE [Concomitant]
     Active Substance: NIACINAMIDE
  15. COLACE [Concomitant]
     Active Substance: DOCUSATE SODIUM
  16. ZINC SULFATE [Concomitant]
     Active Substance: ZINC SULFATE
  17. Nervive Roll-on [Concomitant]

REACTIONS (1)
  - Cerebrovascular accident [None]

NARRATIVE: CASE EVENT DATE: 20250501
